FAERS Safety Report 6100910-3 (Version None)
Quarter: 2009Q1

REPORT INFORMATION
  Report Type: 
  Country: None (occurrence: None)
  Receive Date: 20090304
  Receipt Date: 20090302
  Transmission Date: 20090719
  Serious: Yes (Death)
  Sender: FDA-Public Use
  Company Number: ES-JNJFOC-20090300510

PATIENT
  Sex: Male

DRUGS (3)
  1. RISPERDAL CONSTA [Suspect]
     Indication: SCHIZOPHRENIA
     Route: 030
  2. AKINETON [Concomitant]
     Indication: PARKINSONISM
     Route: 048
  3. TRANXILIUM [Concomitant]
     Indication: RESTLESSNESS
     Route: 042

REACTIONS (1)
  - INFARCTION [None]
